FAERS Safety Report 6843959-5 (Version None)
Quarter: 2010Q3

REPORT INFORMATION
  Report Type: 
  Country: None (occurrence: None)
  Receive Date: 20100715
  Receipt Date: 20100705
  Transmission Date: 20110219
  Serious: Yes (Other)
  Sender: FDA-Public Use
  Company Number: BR-PFIZER INC-2010077104

PATIENT
  Age: 53 Year
  Sex: Female
  Weight: 69 kg

DRUGS (6)
  1. CHAMPIX [Suspect]
     Indication: TOBACCO USER
     Dosage: 0.5 MG, 1X/DAY
     Route: 048
     Dates: start: 20100619
  2. VALIUM [Concomitant]
     Indication: DEPRESSION
     Dosage: UNK
  3. PAROXETINE [Concomitant]
     Indication: DEPRESSION
     Dosage: 20 MG, 2X/DAY
  4. CLOXAZOLAM [Concomitant]
     Dosage: UNK
     Dates: start: 20100101
  5. FLUIMUCIL [Concomitant]
     Indication: BRONCHITIS
     Dosage: UNK
     Dates: end: 20100601
  6. SYMBICORT [Concomitant]
     Indication: EMPHYSEMA
     Dosage: UNK
     Dates: end: 20100601

REACTIONS (10)
  - ANXIETY [None]
  - DEPRESSED MOOD [None]
  - DIARRHOEA [None]
  - DYSGEUSIA [None]
  - DYSPEPSIA [None]
  - EMPHYSEMA [None]
  - NAUSEA [None]
  - NERVOUSNESS [None]
  - SOMNOLENCE [None]
  - TREMOR [None]
